FAERS Safety Report 20290267 (Version 1)
Quarter: 2022Q1

REPORT INFORMATION
  Report Type: Report from Study
  Country: US (occurrence: US)
  Receive Date: 20220104
  Receipt Date: 20220104
  Transmission Date: 20220423
  Serious: Yes (Death, Hospitalization)
  Sender: FDA-Public Use
  Company Number: US-BAUSCH-BL-2021-042944

PATIENT
  Age: 75 Year
  Sex: Female

DRUGS (1)
  1. XIFAXAN [Suspect]
     Active Substance: RIFAXIMIN
     Indication: Hepatic cirrhosis
     Route: 048
     Dates: start: 20191231

REACTIONS (6)
  - Encephalopathy [Fatal]
  - Atrioventricular block [Fatal]
  - Hepatic cirrhosis [Fatal]
  - Portal vein thrombosis [Unknown]
  - Anaemia [Fatal]
  - Thrombocytopenia [Unknown]
